FAERS Safety Report 7913232 (Version 5)
Quarter: 2013Q1

REPORT INFORMATION
  Report Type: Report from Study
  Country: JP (occurrence: JP)
  Receive Date: 20110425
  Receipt Date: 20130117
  Transmission Date: 20140127
  Serious: Yes (Other)
  Sender: FDA-Public Use
  Company Number: PHHY2010JP75150

PATIENT
  Age: 66 Year
  Sex: Female

DRUGS (14)
  1. AMN107 [Suspect]
     Indication: CHRONIC MYELOID LEUKAEMIA
     Dosage: 400 MG, DAILY
     Route: 048
     Dates: start: 20090708, end: 20090714
  2. AMN107 [Suspect]
     Dosage: 600 MG, DAILY
     Route: 048
     Dates: start: 20090715, end: 20090722
  3. AMN107 [Suspect]
     Dosage: 800 MG, DAILY
     Route: 048
     Dates: start: 20090723, end: 20091012
  4. AMN107 [Suspect]
     Dosage: 400 MG, DAILY
     Route: 048
     Dates: start: 20091023, end: 20100514
  5. AMN107 [Suspect]
     Dosage: 400 MG, DAILY
     Route: 048
     Dates: start: 20100607
  6. AMN107 [Suspect]
     Dosage: 400 MG, QW5
     Route: 048
     Dates: start: 20100827, end: 20110216
  7. AMN107 [Suspect]
     Dosage: 200 MG, DAILY
     Route: 048
     Dates: start: 20110317
  8. AMN107 [Suspect]
     Dosage: 400 MG, QW5
     Route: 048
     Dates: start: 20110324
  9. AMN107 [Suspect]
     Dosage: 400 MG, QW4
     Route: 048
     Dates: start: 20110414, end: 20111026
  10. AMN107 [Suspect]
     Dosage: 400 MG, QW2
     Route: 048
     Dates: start: 20111110, end: 20111221
  11. AMN107 [Suspect]
     Dosage: 400 MG, QW3
     Dates: start: 20111222, end: 20120229
  12. AMN107 [Suspect]
     Dosage: 400 MG, QW2
     Dates: start: 20120301, end: 20120620
  13. AMN107 [Suspect]
     Dosage: 400 MG, QW3
     Dates: start: 20120621
  14. HERBESSER [Concomitant]
     Indication: HYPERTENSION
     Dosage: 2 DF, UNK
     Route: 048

REACTIONS (5)
  - Hepatic function abnormal [Recovering/Resolving]
  - Lipase increased [Recovered/Resolved]
  - Platelet count decreased [Not Recovered/Not Resolved]
  - Anaemia [Not Recovered/Not Resolved]
  - White blood cell count decreased [Not Recovered/Not Resolved]
